FAERS Safety Report 13210046 (Version 1)
Quarter: 2017Q1

REPORT INFORMATION
  Report Type: Spontaneous
  Country: CH (occurrence: CH)
  Receive Date: 20170210
  Receipt Date: 20170210
  Transmission Date: 20170428
  Serious: Yes (Hospitalization)
  Sender: FDA-Public Use
  Company Number: CH-009507513-1702CHE000858

PATIENT
  Age: 27 Year
  Sex: Female
  Weight: 79 kg

DRUGS (30)
  1. INVANZ [Suspect]
     Active Substance: ERTAPENEM SODIUM
     Dosage: 1 G, QD
     Route: 042
     Dates: start: 20161217, end: 20161219
  2. DULCOLAX NOS [Suspect]
     Active Substance: BISACODYL OR DOCUSATE SODIUM
     Dosage: SUPPOSITORIES, ONE DOSAGE
     Route: 054
     Dates: start: 20161218, end: 20161218
  3. LEXOTANIL [Suspect]
     Active Substance: BROMAZEPAM
     Dosage: 3 MG, IF REQUIRED
     Dates: start: 20161218, end: 20161219
  4. TAVANIC [Concomitant]
     Active Substance: LEVOFLOXACIN
     Dosage: 500 MG, BID
     Dates: start: 20161215, end: 20161222
  5. SUFENTANIL [Suspect]
     Active Substance: SUFENTANIL
     Dosage: 15-DEC-2016-16-DEC-2017: I.V. 0-15 ?G/H X 16-DEC-2016-19-DEC-2017: I.V. 0-20 ?G/H
     Route: 042
     Dates: start: 20161215, end: 20161219
  6. FENTANYL. [Concomitant]
     Active Substance: FENTANYL
     Dosage: 25 MICROGRAM, UNK
     Dates: start: 20161215, end: 20161215
  7. TRANSIPEG [Concomitant]
     Active Substance: POLYETHYLENE GLYCOL 3350
     Dosage: ONE SACHET DAILY
     Dates: start: 20161216, end: 20161219
  8. GASTROGRAFIN [Suspect]
     Active Substance: DIATRIZOATE MEGLUMINE\DIATRIZOATE SODIUM
     Dosage: 50 ML, UNK
     Dates: start: 20161218, end: 20161218
  9. AUGMENTIN [Concomitant]
     Active Substance: AMOXICILLIN\CLAVULANATE POTASSIUM
     Dosage: 2.2 G, Q8H
     Route: 042
     Dates: start: 20161212, end: 20161215
  10. NOREPINEPHRINE [Concomitant]
     Active Substance: NOREPINEPHRINE\NOREPINEPHRINE BITARTRATE
     Dosage: 0-15 ?G/MIN I.V.
     Route: 042
     Dates: start: 20161215, end: 20161216
  11. HEPARIN [Concomitant]
     Active Substance: HEPARIN SODIUM
     Dosage: 10 IU; HEPARIN 10.000 I.E./24 H I.V.
     Route: 042
     Dates: start: 20161215, end: 20161220
  12. MIDAZOLAM [Suspect]
     Active Substance: MIDAZOLAM HYDROCHLORIDE
     Dosage: I.V. 0-10 MG/H
     Route: 042
     Dates: start: 20161215, end: 20161219
  13. POTASSIUM CHLORIDE. [Concomitant]
     Active Substance: POTASSIUM CHLORIDE
     Dosage: UNK; KCL-PERFUSOR I.V.
     Route: 042
     Dates: start: 20161215, end: 20161220
  14. NEOSTIGMIN [Concomitant]
     Active Substance: NEOSTIGMINE
     Dosage: 0.75 MG, QH
     Dates: start: 20161217, end: 20161218
  15. NOVALGIN (DIPYRONE) [Concomitant]
     Active Substance: DIPYRONE
     Dosage: 500 MG; IF REQUIRED: 19-DEC-2016, 21-DEC-2016
     Dates: start: 20161219, end: 20161221
  16. VALVERDE DETENTE [Concomitant]
     Dosage: 20 ML, UNK
     Dates: start: 20161216, end: 20161219
  17. KLACID (CLARITHROMYCIN LACTOBIONATE) [Concomitant]
     Active Substance: CLARITHROMYCIN
     Dosage: 500 MG, BID
     Route: 048
     Dates: start: 20161214, end: 20161215
  18. PERFALGAN [Concomitant]
     Active Substance: ACETAMINOPHEN
     Dosage: 500 MG, QID
     Route: 042
     Dates: start: 20161218, end: 20161222
  19. DAFALGAN [Concomitant]
     Active Substance: ACETAMINOPHEN
     Dosage: 500 MG, UNK
     Route: 048
     Dates: start: 20161219, end: 20161220
  20. ESOMEP [Concomitant]
     Active Substance: ESOMEPRAZOLE
     Dosage: 40 MG, QD
     Route: 042
     Dates: start: 20161217, end: 20161219
  21. BEPANTHEN (DEXPANTHENOL) [Suspect]
     Active Substance: DEXPANTHENOL
     Dosage: 750 MG/H
     Route: 042
     Dates: start: 20161217, end: 20161218
  22. PROPOFOL. [Concomitant]
     Active Substance: PROPOFOL
     Dosage: I.V. 0-300 MG/H: 15-DEC-2016-16-DEC-2016 X I.V 0-100 MG/H: 17-DEC-2016
     Route: 042
     Dates: start: 20161215, end: 20161217
  23. WILD VI DE 3 [Suspect]
     Active Substance: CHOLECALCIFEROL
     Dosage: 600000 IU, UNK
     Route: 048
     Dates: start: 20161219, end: 20161219
  24. TAZOBAC [Concomitant]
     Active Substance: PIPERACILLIN SODIUM\TAZOBACTAM SODIUM
     Dosage: 4.5 G, TID; PIPERACILLIN: 4 G X TAZOBACTAM: 0,5 G
     Route: 042
     Dates: start: 20161215, end: 20161217
  25. PERFALGAN [Concomitant]
     Active Substance: ACETAMINOPHEN
     Dosage: 1 G, QID
     Route: 042
     Dates: start: 20161215, end: 20161215
  26. ESOMEP [Concomitant]
     Active Substance: ESOMEPRAZOLE
     Dosage: 40 MG, QD
     Route: 048
     Dates: start: 20161220, end: 20161226
  27. ESMERON [Concomitant]
     Active Substance: ROCURONIUM BROMIDE
     Dosage: BOLUS INJECTIONS IF NECESSARY
     Route: 042
     Dates: start: 20161215, end: 20161216
  28. PASPERTIN [Suspect]
     Active Substance: METOCLOPRAMIDE HYDROCHLORIDE
     Dosage: 10 MG, TID
     Dates: start: 20161217, end: 20161219
  29. DEXTROSE. [Concomitant]
     Active Substance: DEXTROSE
     Dosage: 5 %, UNK
     Route: 042
     Dates: start: 20161215, end: 20161220
  30. DEXDOR [Concomitant]
     Active Substance: DEXMEDETOMIDINE HYDROCHLORIDE
     Dosage: I.V. 0-110 MG/H
     Route: 042
     Dates: start: 20161216, end: 20161219

REACTIONS (1)
  - Drug eruption [Recovered/Resolved]

NARRATIVE: CASE EVENT DATE: 20161219
